FAERS Safety Report 16722495 (Version 3)
Quarter: 2019Q4

REPORT INFORMATION
  Report Type: Report from Study
  Country: CA (occurrence: CA)
  Receive Date: 20190820
  Receipt Date: 20191223
  Transmission Date: 20200122
  Serious: Yes (Hospitalization, Other)
  Sender: FDA-Public Use
  Company Number: PHHO2019CA000903

PATIENT
  Age: 8 Year
  Sex: Female
  Weight: 34.2 kg

DRUGS (13)
  1. CTL019(RE-GEN) [Suspect]
     Active Substance: TISAGENLECLEUCEL
     Indication: ACUTE LYMPHOCYTIC LEUKAEMIA
     Dosage: 0.6 X10^8 CELLS
     Route: 042
     Dates: start: 20190312
  2. CYCLOPHOSPHAMIDE. [Concomitant]
     Active Substance: CYCLOPHOSPHAMIDE
     Dosage: 1140 MG OVER 1 HOUR
     Route: 042
     Dates: start: 20190117, end: 20190117
  3. ETOPOSIDE. [Concomitant]
     Active Substance: ETOPOSIDE
     Indication: PROPHYLAXIS
     Dosage: 112 MG, QD
     Route: 042
     Dates: start: 20190207
  4. CYCLOPHOSPHAMIDE. [Concomitant]
     Active Substance: CYCLOPHOSPHAMIDE
     Indication: PROPHYLAXIS
     Dosage: 490 MG, QD
     Route: 042
     Dates: start: 20180207
  5. IMMUNGLOBULIN [Suspect]
     Active Substance: HUMAN IMMUNOGLOBULIN G
     Indication: BLOOD IMMUNOGLOBULIN G DECREASED
     Dosage: 35 G, QD
     Route: 042
     Dates: start: 20190111, end: 20190111
  6. METHOTREXATE. [Concomitant]
     Active Substance: METHOTREXATE
     Indication: PROPHYLAXIS
     Dosage: 12 MG, ONCE/SINGLE
     Route: 037
     Dates: start: 20181221, end: 20190131
  7. LEVOFLOXACIN. [Concomitant]
     Active Substance: LEVOFLOXACIN
     Indication: INFECTION PROPHYLAXIS
     Dosage: 350 MG, QD
     Route: 048
     Dates: start: 20190111, end: 20190111
  8. VINCRISTINE [Concomitant]
     Active Substance: VINCRISTINE
     Indication: PROPHYLAXIS
     Dosage: 1.5 MG IV PUSH
     Route: 042
     Dates: start: 20181220, end: 20190202
  9. CYTARABINE. [Concomitant]
     Active Substance: CYTARABINE
     Indication: PROPHYLAXIS
     Dosage: 24 MG, ONCE/SINGLE
     Route: 037
     Dates: start: 20181221, end: 20190131
  10. 6 MP [Concomitant]
     Active Substance: MERCAPTOPURINE
     Indication: PROPHYLAXIS
     Dosage: 90 MG, QD
     Route: 048
     Dates: start: 20181220, end: 20190106
  11. TRIPLE [Concomitant]
     Active Substance: BACITRACIN\NEOMYCIN SULFATE\POLYMYXIN B SULFATE
     Indication: PROPHYLAXIS
     Dosage: QD
     Route: 065
     Dates: start: 20190130, end: 20190130
  12. NIFEDIPINE. [Concomitant]
     Active Substance: NIFEDIPINE
     Indication: HYPERTENSION
     Dosage: 2 MG, Q6H
     Route: 048
     Dates: start: 20190204, end: 201902
  13. HYDROCORTISONE. [Concomitant]
     Active Substance: HYDROCORTISONE
     Indication: PROPHYLAXIS
     Dosage: 12 MG, ONCE/SINGLE
     Route: 037
     Dates: start: 20181221, end: 20190131

REACTIONS (12)
  - Pyrexia [Recovered/Resolved]
  - Pyrexia [Recovered/Resolved]
  - Lower respiratory tract infection fungal [Recovered/Resolved]
  - Febrile neutropenia [Recovered/Resolved]
  - Pneumonia [Recovered/Resolved]
  - Pneumonia [Recovered/Resolved]
  - Splinter [Recovering/Resolving]
  - Anal fistula [Recovered/Resolved]
  - Device related infection [Recovered/Resolved]
  - Erythema [Recovered/Resolved]
  - Pyrexia [Recovered/Resolved]
  - Staphylococcal infection [Recovered/Resolved]

NARRATIVE: CASE EVENT DATE: 20190111
